FAERS Safety Report 17442873 (Version 5)
Quarter: 2023Q2

REPORT INFORMATION
  Report Type: Report from Study
  Country: CO (occurrence: CO)
  Receive Date: 20200221
  Receipt Date: 20230523
  Transmission Date: 20230722
  Serious: Yes (Hospitalization)
  Sender: FDA-Public Use
  Company Number: None

PATIENT
  Age: 61 Year
  Sex: Female
  Weight: 56 kg

DRUGS (6)
  1. HUMIRA [Suspect]
     Active Substance: ADALIMUMAB
     Indication: Rheumatoid arthritis
     Route: 058
     Dates: start: 20160829
  2. HUMIRA [Suspect]
     Active Substance: ADALIMUMAB
  3. METHOTREXATE [Concomitant]
     Active Substance: METHOTREXATE
     Indication: Rheumatoid arthritis
     Route: 048
     Dates: start: 2004
  4. PREDNISOLONE [Concomitant]
     Active Substance: PREDNISOLONE
     Indication: Rheumatoid arthritis
     Route: 048
     Dates: start: 2004
  5. ACETAMINOPHEN [Concomitant]
     Active Substance: ACETAMINOPHEN
     Indication: Pain
  6. IBUPROFEN [Concomitant]
     Active Substance: IBUPROFEN
     Indication: Pain

REACTIONS (18)
  - Scoliosis [Unknown]
  - Oxygen saturation abnormal [Recovering/Resolving]
  - Pneumonia [Recovering/Resolving]
  - Somnolence [Recovering/Resolving]
  - Spinal osteoarthritis [Unknown]
  - Intervertebral disc protrusion [Recovering/Resolving]
  - Spinal disorder [Not Recovered/Not Resolved]
  - Nail disorder [Recovering/Resolving]
  - Movement disorder [Recovering/Resolving]
  - Pain in extremity [Recovering/Resolving]
  - Arthralgia [Not Recovered/Not Resolved]
  - Infection [Unknown]
  - Influenza [Recovered/Resolved]
  - Spinal pain [Not Recovered/Not Resolved]
  - COVID-19 [Recovered/Resolved]
  - Productive cough [Not Recovered/Not Resolved]
  - Diabetes mellitus [Recovering/Resolving]
  - Blood glucose decreased [Recovered/Resolved]

NARRATIVE: CASE EVENT DATE: 20181201
